FAERS Safety Report 5978830-4 (Version None)
Quarter: 2008Q4

REPORT INFORMATION
  Report Type: 
  Country: None (occurrence: None)
  Receive Date: 20081204
  Receipt Date: 20081201
  Transmission Date: 20090506
  Serious: Yes (Death)
  Sender: FDA-Public Use
  Company Number: PHHY2008JP30420

PATIENT
  Sex: Female
  Weight: 43 kg

DRUGS (2)
  1. DIOVAN [Suspect]
     Indication: HYPERTENSION
     Dosage: 80 MG, BID
     Route: 048
     Dates: start: 20070918
  2. AMLODIN [Concomitant]
     Indication: HYPERTENSION
     Dosage: 10 MG
     Route: 048
     Dates: start: 20020311, end: 20070917

REACTIONS (2)
  - CEREBRAL HAEMORRHAGE [None]
  - CEREBRAL INFARCTION [None]
